FAERS Safety Report 8587688 (Version 3)
Quarter: 2013Q4

REPORT INFORMATION
  Report Type: Spontaneous
  Country: JP (occurrence: JP)
  Receive Date: 20120531
  Receipt Date: 20131203
  Transmission Date: 20140711
  Serious: Yes (Hospitalization)
  Sender: FDA-Public Use
  Company Number: JP-PFIZER INC-2012128289

PATIENT
  Age: 60 Year
  Sex: Male

DRUGS (3)
  1. SUTENT [Suspect]
     Indication: RENAL CELL CARCINOMA
     Dosage: 25 MG, DAILY
     Route: 048
     Dates: start: 20101210, end: 20120526
  2. SUTENT [Suspect]
     Dosage: UNK
     Route: 048
     Dates: start: 20120527, end: 20120527
  3. LENDORMIN [Concomitant]
     Dosage: UNK
     Route: 048
     Dates: start: 20120527, end: 20120527

REACTIONS (2)
  - Intentional overdose [Not Recovered/Not Resolved]
  - Suicide attempt [Not Recovered/Not Resolved]
